FAERS Safety Report 5341271-7 (Version None)
Quarter: 2007Q2

REPORT INFORMATION
  Report Type: 
  Country: None (occurrence: None)
  Receive Date: 20070404
  Receipt Date: 20070117
  Transmission Date: 20071010
  Serious: Yes (Other)
  Sender: FDA-Public Use
  Company Number: 2007004979

PATIENT
  Sex: Male

DRUGS (1)
  1. GEODON [Suspect]
     Indication: BIPOLAR DISORDER
     Dosage: 40 MG (20 MG,2 IN 1 D), ORAL
     Route: 048
     Dates: start: 20070112, end: 20070114

REACTIONS (1)
  - GRAND MAL CONVULSION [None]
